FAERS Safety Report 9017157 (Version 1)
Quarter: 2013Q1

REPORT INFORMATION
  Report Type: Report from Study
  Country: AT (occurrence: AT)
  Receive Date: 20130117
  Receipt Date: 20130117
  Transmission Date: 20140127
  Serious: Yes (Hospitalization)
  Sender: FDA-Public Use
  Company Number: AT-INCYTE CORPORATION-2013IN000105

PATIENT
  Age: 86 Year
  Sex: Male
  Weight: 86 kg

DRUGS (13)
  1. INCB018424 [Suspect]
     Indication: MYELOFIBROSIS
     Dosage: 25 MG, QD (15 MG IN AM AND 10 MG IN PM)
     Route: 048
     Dates: start: 20091117
  2. ACETYLSALICYLIC ACID [Concomitant]
     Dosage: UNK
     Dates: start: 20050304, end: 20100901
  3. ALLOPURINOL [Concomitant]
     Dosage: UNK
     Dates: start: 20090625
  4. AMOXICILLIN [Concomitant]
     Dosage: UNK
     Dates: start: 20100121, end: 20100227
  5. CLARITHROMYCIN [Concomitant]
     Dosage: UNK
     Dates: start: 20100504, end: 20111225
  6. DALTEPARIN [Concomitant]
     Dosage: UNK
     Dates: start: 20100903, end: 20101020
  7. BISOPROLOL [Concomitant]
     Dosage: UNK
     Dates: start: 20100903
  8. NATRIUM CHLORIDE W/GLUCOSE [Concomitant]
     Dosage: UNK
     Dates: start: 20100903
  9. HYDROCHLOROTHIAZIDE [Concomitant]
     Dosage: UNK
     Dates: start: 20110224, end: 20110408
  10. LISINOPRIL [Concomitant]
     Dosage: UNK
     Dates: start: 20110112, end: 20120222
  11. PIPERACILLIN [Concomitant]
     Dosage: UNK
     Dates: start: 20111225, end: 20120103
  12. ACETYLCYSTEINE SENJU [Concomitant]
     Dosage: UNK
     Dates: start: 20111225, end: 20120201
  13. PARACETAMOL [Concomitant]
     Dosage: UNK
     Dates: start: 20111225

REACTIONS (1)
  - Sick sinus syndrome [Recovering/Resolving]
